FAERS Safety Report 21663116 (Version 1)
Quarter: 2022Q4

REPORT INFORMATION
  Report Type: Spontaneous
  Country: CH (occurrence: CH)
  Receive Date: 20221130
  Receipt Date: 20221130
  Transmission Date: 20230112
  Serious: Yes (Hospitalization, Other)
  Sender: FDA-Public Use
  Company Number: None

PATIENT
  Age: 74 Year
  Sex: Male

DRUGS (17)
  1. ELOXATIN [Suspect]
     Active Substance: OXALIPLATIN
     Indication: Oesophageal squamous cell carcinoma
     Dosage: 100 MG, 1X
     Route: 042
     Dates: start: 20220718, end: 20220718
  2. DESLORATADINE [Suspect]
     Active Substance: DESLORATADINE
     Dosage: 5 MG, QD (5 MG 1-0-0-0)
     Route: 048
     Dates: start: 20220719, end: 20220719
  3. NALOXONE HYDROCHLORIDE\OXYCODONE HYDROCHLORIDE [Suspect]
     Active Substance: NALOXONE HYDROCHLORIDE\OXYCODONE HYDROCHLORIDE
     Dosage: 1 DF
     Route: 048
  4. FLUOROURACIL [Suspect]
     Active Substance: FLUOROURACIL
     Indication: Oesophageal squamous cell carcinoma
     Dosage: 500 MG
     Route: 042
     Dates: start: 20220718, end: 20220718
  5. FLUOROURACIL [Suspect]
     Active Substance: FLUOROURACIL
     Dosage: 4000 MG
     Route: 042
     Dates: start: 20220718, end: 20220719
  6. LEUCOVORIN [Suspect]
     Active Substance: LEUCOVORIN
     Indication: Oesophageal squamous cell carcinoma
     Dosage: 200 MG, 1X
     Route: 042
     Dates: start: 20220718, end: 20220718
  7. ASPIRIN [Concomitant]
     Active Substance: ASPIRIN
     Dosage: 100 MG, QD (100 MG 1-0-0, STOPPED ON HOSPITAL ADMISSION)
     Route: 048
     Dates: end: 20220719
  8. EUTHYROX [Concomitant]
     Active Substance: LEVOTHYROXINE SODIUM
     Dosage: 25 UG, Q3W (INCREASED TO DAILY DURING HOSPITALIZATION)
     Route: 048
  9. EUTHYROX [Concomitant]
     Active Substance: LEVOTHYROXINE SODIUM
     Dosage: 25 UG, QD
     Route: 048
  10. ESOMEPRAZOLE SODIUM [Concomitant]
     Active Substance: ESOMEPRAZOLE SODIUM
     Dosage: 20 MG, QD (20 MG 1-0-0-0, SWITCH TO PANTOPRAZOLE 40 MG 1-0-0-0 DURING HOSPITALIZATION)
     Route: 048
     Dates: end: 20220719
  11. LYRICA [Concomitant]
     Active Substance: PREGABALIN
     Dosage: 50 MG, QD
     Route: 048
     Dates: end: 202201
  12. TAMSULOSIN [Concomitant]
     Active Substance: TAMSULOSIN
     Dosage: 0.4 MG, QD
     Route: 048
  13. FOLIC ACID [Concomitant]
     Active Substance: FOLIC ACID
     Dosage: 5 MG, QD (5 MG 1-0-0-0, STOPPED ON ADMISSION TO THE HOSPITAL)
     Route: 048
     Dates: end: 20220719
  14. BECOZYM [VITAMIN B NOS] [Concomitant]
     Dosage: 1 DF, BID (1-0-0-0)
     Route: 048
  15. THIAMINE HYDROCHLORIDE [Concomitant]
     Active Substance: THIAMINE HYDROCHLORIDE
     Dosage: 300 MG, QD (1-0-0-0)
     Route: 048
  16. VITARUBIN [CYANOCOBALAMIN] [Concomitant]
     Dosage: 1 DF, QW (1000 MCG/ML 1X/WEEK )
     Route: 030
  17. GLYCOPYRRONIUM\INDACATEROL [Concomitant]
     Active Substance: GLYCOPYRRONIUM\INDACATEROL
     Dosage: 110/50  UG, QD
     Route: 055

REACTIONS (3)
  - Toxic encephalopathy [Recovering/Resolving]
  - Cardiac failure chronic [Recovering/Resolving]
  - Disturbance in attention [Recovering/Resolving]

NARRATIVE: CASE EVENT DATE: 20220719
